FAERS Safety Report 6144651-5 (Version None)
Quarter: 2009Q2

REPORT INFORMATION
  Report Type: 
  Country: None (occurrence: None)
  Receive Date: 20090406
  Receipt Date: 20090327
  Transmission Date: 20091009
  Serious: Yes (Other)
  Sender: FDA-Public Use
  Company Number: A0773106A

PATIENT
  Sex: Female

DRUGS (1)
  1. TREXIMET [Suspect]
     Indication: HEADACHE
     Dosage: 1TAB SINGLE DOSE
     Route: 048

REACTIONS (5)
  - ANGINA PECTORIS [None]
  - CATHETERISATION CARDIAC [None]
  - FEAR [None]
  - MYOCARDIAL INFARCTION [None]
  - PRODUCT QUALITY ISSUE [None]
